FAERS Safety Report 6042037-5 (Version None)
Quarter: 2009Q1

REPORT INFORMATION
  Report Type: 
  Country: None (occurrence: None)
  Receive Date: 20090116
  Receipt Date: 20090112
  Transmission Date: 20090719
  Serious: Yes (Hospitalization)
  Sender: FDA-Public Use
  Company Number: KR-TEVA-183718ISR

PATIENT
  Sex: Male
  Weight: 64 kg

DRUGS (8)
  1. FLUOROURACIL [Suspect]
     Route: 040
     Dates: start: 20081028
  2. FLUOROURACIL [Suspect]
     Route: 041
  3. LEUCOVORIN CALCIUM [Suspect]
     Route: 042
     Dates: start: 20081028
  4. AXITINIB [Suspect]
     Route: 048
     Dates: start: 20081028
  5. IRINOTECAN HYDROCHLORIDE [Suspect]
     Route: 042
     Dates: start: 20081028
  6. LOPERAMIDE OXIDE [Concomitant]
  7. TROPISETRON HYDROCHLORIDE [Concomitant]
     Dates: start: 20081210, end: 20081211
  8. DOMPERIDONE [Concomitant]
     Dates: start: 20081209, end: 20081217

REACTIONS (1)
  - ANAL INFLAMMATION [None]
